FAERS Safety Report 7050201-1 (Version None)
Quarter: 2010Q4

REPORT INFORMATION
  Report Type: 
  Country: None (occurrence: None)
  Receive Date: 20101018
  Receipt Date: 20101001
  Transmission Date: 20110411
  Serious: Yes (Death)
  Sender: FDA-Public Use
  Company Number: US-AMGEN INC.-KDL443600

PATIENT

DRUGS (2)
  1. PROCRIT [Suspect]
     Indication: PRODUCT USED FOR UNKNOWN INDICATION
     Dosage: UNK UNK, 3 TIMES/WK
     Route: 042
     Dates: start: 20080301, end: 20100701
  2. EPOGEN [Concomitant]
     Indication: DIALYSIS
     Dosage: UNK UNK, 3 TIMES/WK
     Route: 042
     Dates: start: 20080301, end: 20100701

REACTIONS (1)
  - DEATH [None]
